FAERS Safety Report 6249976-0 (Version None)
Quarter: 2009Q2

REPORT INFORMATION
  Report Type: 
  Country: None (occurrence: None)
  Receive Date: 20090629
  Receipt Date: 20090617
  Transmission Date: 20091009
  Serious: Yes (Hospitalization)
  Sender: FDA-Public Use
  Company Number: IT-GENENTECH-278758

PATIENT
  Sex: Male

DRUGS (1)
  1. NUTROPIN AQ [Suspect]
     Indication: SMALL FOR DATES BABY
     Dosage: 0.6 MG, UNK
     Route: 058
     Dates: start: 20090216, end: 20090219

REACTIONS (1)
  - ANGIOEDEMA [None]
